FAERS Safety Report 10725882 (Version 2)
Quarter: 2015Q1

REPORT INFORMATION
  Report Type: Spontaneous
  Country: SE (occurrence: SE)
  Receive Date: 20150121
  Receipt Date: 20150123
  Transmission Date: 20150721
  Serious: Yes (Other)
  Sender: FDA-Public Use
  Company Number: SE-AMGEN-SWESP2015004143

PATIENT
  Age: 45 Year
  Sex: Female

DRUGS (19)
  1. FOLACIN                            /00198401/ [Concomitant]
     Active Substance: FOLIC ACID
     Dosage: UNK
  2. EUTHYROX [Concomitant]
     Active Substance: LEVOTHYROXINE SODIUM
     Dosage: UNK
  3. LACTULOSE. [Concomitant]
     Active Substance: LACTULOSE
     Dosage: UNK
  4. PRIMPERAN [Concomitant]
     Active Substance: METOCLOPRAMIDE HYDROCHLORIDE
     Dosage: UNK, AS NEEDED
  5. THERALEN [Concomitant]
     Active Substance: TRIMEPRAZINE
     Dosage: UNK, AS NEEDED
  6. PANCREON [Concomitant]
     Active Substance: PANCRELIPASE
     Dosage: UNK
  7. ZINK                               /00156502/ [Concomitant]
     Dosage: UNK
  8. BEHEPAN                            /00091803/ [Concomitant]
     Dosage: UNK
  9. CALCICHEW-D3 [Concomitant]
     Active Substance: CALCIUM\CHOLECALCIFEROL
     Dosage: UNK
  10. MOGADON [Concomitant]
     Active Substance: NITRAZEPAM
     Dosage: UNK, AS NEEDED
  11. METHADONE [Concomitant]
     Active Substance: METHADONE HYDROCHLORIDE
     Dosage: UNK
  12. VICTOZA [Concomitant]
     Active Substance: LIRAGLUTIDE
     Dosage: UNK
  13. FURIX [Concomitant]
     Active Substance: FUROSEMIDE
     Dosage: UNK
  14. PREDNISOLONE. [Concomitant]
     Active Substance: PREDNISOLONE
     Dosage: UNK
  15. EGAZIL [Concomitant]
     Active Substance: HYOSCYAMINE SULFATE
     Dosage: UNK, AS NEEDED
  16. ALVEDON [Concomitant]
     Active Substance: ACETAMINOPHEN
     Dosage: UNK, AS NEEDED
  17. CATAPRESAN                         /00171101/ [Concomitant]
     Active Substance: CLONIDINE
     Dosage: UNK
  18. KAJOS [Concomitant]
     Active Substance: POTASSIUM CITRATE
     Dosage: UNK
  19. ENBREL [Suspect]
     Active Substance: ETANERCEPT
     Indication: PSORIATIC ARTHROPATHY
     Dosage: 50 MG, WEEKLY
     Route: 065
     Dates: start: 20140729, end: 20141117

REACTIONS (2)
  - Suicidal ideation [Recovered/Resolved]
  - Depressive symptom [Recovered/Resolved]

NARRATIVE: CASE EVENT DATE: 2014
